FAERS Safety Report 17342182 (Version 1)
Quarter: 2020Q1

REPORT INFORMATION
  Report Type: Spontaneous
  Country: US (occurrence: US)
  Receive Date: 20200129
  Receipt Date: 20200129
  Transmission Date: 20200409
  Serious: No
  Sender: FDA-Public Use
  Company Number: US-ALLERGAN-1924773US

PATIENT
  Sex: Female
  Weight: 59.86 kg

DRUGS (6)
  1. VITAMIN D [Concomitant]
     Active Substance: VITAMIN D NOS
  2. BOTOX COSMETIC [Suspect]
     Active Substance: ONABOTULINUMTOXINA
     Dosage: UNK
     Route: 065
  3. CALCIUM [Concomitant]
     Active Substance: CALCIUM
  4. BOTOX COSMETIC [Suspect]
     Active Substance: ONABOTULINUMTOXINA
     Indication: FACE LIFT
     Dosage: 50 UNITS, SINGLE
     Route: 065
     Dates: start: 20190524, end: 20190524
  5. MVI [Concomitant]
     Active Substance: VITAMINS
  6. LETROZOLE. [Concomitant]
     Active Substance: LETROZOLE

REACTIONS (4)
  - Dermatochalasis [Unknown]
  - Off label use [Unknown]
  - Eyelid ptosis [Unknown]
  - Brow ptosis [Unknown]
